FAERS Safety Report 17134359 (Version 2)
Quarter: 2019Q4

REPORT INFORMATION
  Report Type: Spontaneous
  Country: US (occurrence: US)
  Receive Date: 20191210
  Receipt Date: 20191212
  Transmission Date: 20200122
  Serious: Yes (Life-Threatening, Other)
  Sender: FDA-Public Use
  Company Number: US-FRESENIUS KABI-FK201913511

PATIENT
  Age: 59 Year
  Sex: Male
  Weight: 83.9 kg

DRUGS (1)
  1. PROTAMINE SULFATE INJECTION, USP [Suspect]
     Active Substance: PROTAMINE SULFATE
     Indication: CAROTID ENDARTERECTOMY
     Route: 042
     Dates: start: 20191023, end: 20191023

REACTIONS (2)
  - Blood pressure decreased [Unknown]
  - Anaphylactic reaction [Unknown]

NARRATIVE: CASE EVENT DATE: 20191023
